FAERS Safety Report 6626707-3 (Version None)
Quarter: 2010Q1

REPORT INFORMATION
  Report Type: 
  Country: None (occurrence: None)
  Receive Date: 20100308
  Receipt Date: 20100219
  Transmission Date: 20100710
  Serious: Yes (Other)
  Sender: FDA-Public Use
  Company Number: 056-20484-10021710

PATIENT
  Age: 83 Year
  Sex: Female
  Weight: 70 kg

DRUGS (1)
  1. INNOHEP [Suspect]
     Dosage: (12000 IU), SUBCUTANEOUS
     Route: 058
     Dates: start: 20100201

REACTIONS (2)
  - ABDOMINAL WALL HAEMATOMA [None]
  - OFF LABEL USE [None]
